FAERS Safety Report 10443954 (Version 1)
Quarter: 2014Q3

REPORT INFORMATION
  Report Type: Spontaneous
  Country: US (occurrence: US)
  Receive Date: 20140910
  Receipt Date: 20140910
  Transmission Date: 20150326
  Serious: No
  Sender: FDA-Public Use
  Company Number: US-TARO-2014P1000815

PATIENT
  Age: 52 Year
  Sex: Male
  Weight: 124.29 kg

DRUGS (10)
  1. TRICOR [Concomitant]
     Active Substance: FENOFIBRATE
  2. LOW DOSE ASPIRIN [Concomitant]
     Active Substance: ASPIRIN
  3. ZANTAC [Concomitant]
     Active Substance: RANITIDINE HYDROCHLORIDE
  4. ONGLYZA [Concomitant]
     Active Substance: SAXAGLIPTIN HYDROCHLORIDE
  5. FISH OIL [Concomitant]
     Active Substance: FISH OIL
  6. ANERIL [Concomitant]
  7. WARFARIN SODIUM TABLETS USP 2.5MG [Suspect]
     Active Substance: WARFARIN SODIUM
     Indication: PULMONARY EMBOLISM
     Route: 048
     Dates: start: 20130710
  8. WARFARIN SODIUM TABLETS USP 2.5MG [Suspect]
     Active Substance: WARFARIN SODIUM
     Route: 048
  9. TAPAZOLE [Concomitant]
     Active Substance: METHIMAZOLE
  10. WARFARIN SODIUM TABLETS USP 2.5MG [Suspect]
     Active Substance: WARFARIN SODIUM
     Route: 048

REACTIONS (6)
  - International normalised ratio fluctuation [Not Recovered/Not Resolved]
  - International normalised ratio decreased [Unknown]
  - Haematocrit increased [Unknown]
  - International normalised ratio increased [Unknown]
  - Vitamin D decreased [Unknown]
  - Blood testosterone decreased [Unknown]

NARRATIVE: CASE EVENT DATE: 201307
